FAERS Safety Report 11646878 (Version 1)
Quarter: 2015Q4

REPORT INFORMATION
  Report Type: Spontaneous
  Country: US (occurrence: US)
  Receive Date: 20151020
  Receipt Date: 20151020
  Transmission Date: 20160304
  Serious: No
  Sender: FDA-Public Use
  Company Number: US-ROCHE-ITM201504IM014315

PATIENT
  Age: 87 Year
  Sex: Male

DRUGS (6)
  1. PIRFENIDONE [Suspect]
     Active Substance: PIRFENIDONE
     Dosage: 3 CAPSULES PER DAY
     Route: 048
     Dates: start: 20150616
  2. PIRFENIDONE [Suspect]
     Active Substance: PIRFENIDONE
     Dosage: 8 CAPSULES PER DAY
     Route: 048
  3. PIRFENIDONE [Suspect]
     Active Substance: PIRFENIDONE
     Dosage: 5 CAPSULES PER DAY
     Route: 048
     Dates: start: 20150629
  4. PIRFENIDONE [Suspect]
     Active Substance: PIRFENIDONE
     Dosage: 6 CAPSULES PER DAY
     Route: 048
     Dates: start: 20150704, end: 20150704
  5. PIRFENIDONE [Suspect]
     Active Substance: PIRFENIDONE
     Indication: IDIOPATHIC PULMONARY FIBROSIS
     Dosage: 3 CAPSULES THRICE A DAY
     Route: 048
     Dates: start: 201504
  6. PIRFENIDONE [Suspect]
     Active Substance: PIRFENIDONE
     Dosage: 4 CAPSULES PER DAY
     Route: 048
     Dates: start: 20150624

REACTIONS (5)
  - Gastric disorder [Unknown]
  - Abdominal pain upper [Unknown]
  - Nasopharyngitis [Unknown]
  - Intentional product misuse [Unknown]
  - Abdominal discomfort [Unknown]

NARRATIVE: CASE EVENT DATE: 20150624
